FAERS Safety Report 13584633 (Version 1)
Quarter: 2017Q2

REPORT INFORMATION
  Report Type: Spontaneous
  Country: FR (occurrence: FR)
  Receive Date: 20170526
  Receipt Date: 20170526
  Transmission Date: 20170830
  Serious: Yes (Death, Other)
  Sender: FDA-Public Use
  Company Number: FR-CORDEN PHARMA LATINA S.P.A.-FR-2017COR000124

PATIENT
  Age: 61 Year
  Sex: Male

DRUGS (8)
  1. RITUXIMAB [Suspect]
     Active Substance: RITUXIMAB
     Indication: DIFFUSE LARGE B-CELL LYMPHOMA
     Dosage: UNK, 6 SEQUENCES
  2. MITOXANTRONE [Suspect]
     Active Substance: MITOXANTRONE HYDROCHLORIDE
     Indication: DIFFUSE LARGE B-CELL LYMPHOMA
     Dosage: UNK, 6 SEQUENCES
  3. MELPHALAN. [Suspect]
     Active Substance: MELPHALAN
     Indication: MARGINAL ZONE LYMPHOMA
     Dosage: UNK, BEAM CONDITIONING
  4. ETOPOSIDE. [Suspect]
     Active Substance: ETOPOSIDE
     Indication: MARGINAL ZONE LYMPHOMA
     Dosage: UNK, BEAM CONDITIONING
  5. CARMUSTINE [Suspect]
     Active Substance: CARMUSTINE
     Indication: MARGINAL ZONE LYMPHOMA
     Dosage: UNK, BEAM CONDITIONING
  6. IFOSFAMIDE. [Suspect]
     Active Substance: IFOSFAMIDE
     Indication: DIFFUSE LARGE B-CELL LYMPHOMA
     Dosage: UNK, 6 SEQUENCES
  7. ETOPOSIDE. [Suspect]
     Active Substance: ETOPOSIDE
     Indication: DIFFUSE LARGE B-CELL LYMPHOMA
     Dosage: UNK, 6 SEQUENCES
  8. CYTOSINE ARABINOSIDE [Suspect]
     Active Substance: CYTARABINE
     Indication: MARGINAL ZONE LYMPHOMA
     Dosage: UNK, BEAM CONDITIONING

REACTIONS (4)
  - Kaposi^s sarcoma [Recovered/Resolved]
  - Sepsis [Fatal]
  - Acute myeloid leukaemia [Unknown]
  - Cellulitis [Unknown]
